FAERS Safety Report 5663405-7 (Version None)
Quarter: 2008Q1

REPORT INFORMATION
  Report Type: 
  Country: None (occurrence: None)
  Receive Date: 20080307
  Receipt Date: 20080222
  Transmission Date: 20080703
  Serious: Yes (Life-Threatening, Hospitalization)
  Sender: FDA-Public Use
  Company Number: 2008P1000031

PATIENT
  Age: 54 Year
  Sex: Female

DRUGS (7)
  1. BUSULFAN (BUSULFAN) [Suspect]
     Indication: STEM CELL TRANSPLANT
     Dosage: IV
     Route: 042
     Dates: start: 20070912, end: 20070915
  2. BUSULFAN (BUSULFAN) [Suspect]
     Indication: STEM CELL TRANSPLANT
     Dosage: IV
     Route: 042
     Dates: start: 20071017
  3. CYCLOPHOSPHAMIDE [Concomitant]
  4. VALPROATE SODIUM [Concomitant]
  5. FILGRASTIM [Concomitant]
  6. METHOTREXATE [Concomitant]
  7. CYCLOSPORINE [Concomitant]

REACTIONS (7)
  - ANOREXIA [None]
  - BONE MARROW TRANSPLANT REJECTION [None]
  - DIARRHOEA [None]
  - MALAISE [None]
  - NAUSEA [None]
  - STOMATITIS [None]
  - VOMITING [None]
